FAERS Safety Report 6855184-2 (Version None)
Quarter: 2010Q3

REPORT INFORMATION
  Report Type: 
  Country: None (occurrence: None)
  Receive Date: 20100717
  Receipt Date: 20090301
  Transmission Date: 20110219
  Serious: No
  Sender: FDA-Public Use
  Company Number: US-PFIZER INC-2007105091

PATIENT
  Sex: Female
  Weight: 61.4 kg

DRUGS (3)
  1. CHANTIX [Suspect]
     Indication: SMOKING CESSATION THERAPY
     Dosage: UNK
     Dates: start: 20070730, end: 20070901
  2. HYDROXYZINE PAMOATE [Suspect]
     Dates: start: 20070926, end: 20070101
  3. VALERIAN ROOT [Suspect]
     Dosage: UNK
     Dates: start: 20070101

REACTIONS (8)
  - ANXIETY [None]
  - FATIGUE [None]
  - IRRITABILITY [None]
  - NASOPHARYNGITIS [None]
  - NERVOUSNESS [None]
  - SINUSITIS [None]
  - SLEEP DISORDER [None]
  - SOMNOLENCE [None]
